FAERS Safety Report 25309012 (Version 3)
Quarter: 2025Q4

REPORT INFORMATION
  Report Type: Spontaneous
  Country: US (occurrence: US)
  Receive Date: 20250513
  Receipt Date: 20251122
  Transmission Date: 20260117
  Serious: No
  Sender: SANOFI AVENTIS
  Company Number: US-SA-2025SA135841

PATIENT
  Age: 50 Year
  Sex: Female

DRUGS (2)
  1. DUPIXENT [Suspect]
     Active Substance: DUPILUMAB
     Indication: Dermatitis atopic
     Dosage: 600 MG, 1X
     Route: 058
     Dates: start: 20250430, end: 20250430
  2. DUPIXENT [Suspect]
     Active Substance: DUPILUMAB
     Dosage: 300 MG, QOW
     Route: 058
     Dates: start: 20250521

REACTIONS (11)
  - Mental status changes [Unknown]
  - General physical condition abnormal [Unknown]
  - Hordeolum [Recovered/Resolved]
  - Skin exfoliation [Recovered/Resolved]
  - Rebound effect [Recovered/Resolved]
  - Eye pain [Recovered/Resolved]
  - Arthralgia [Recovered/Resolved]
  - Eczema [Recovered/Resolved]
  - Dermatitis atopic [Recovering/Resolving]
  - Product dose omission issue [Unknown]
  - Product preparation error [Unknown]

NARRATIVE: CASE EVENT DATE: 20250101
